FAERS Safety Report 16805224 (Version 2)
Quarter: 2019Q3

REPORT INFORMATION
  Report Type: Spontaneous
  Country: IR (occurrence: IR)
  Receive Date: 20190913
  Receipt Date: 20190916
  Transmission Date: 20191005
  Serious: Yes (Other)
  Sender: FDA-Public Use
  Company Number: PHHY2019IR210946

PATIENT
  Age: 35 Year
  Sex: Female
  Weight: 40 kg

DRUGS (1)
  1. DESFERAL [Suspect]
     Active Substance: DEFEROXAMINE MESYLATE
     Indication: THALASSAEMIA
     Dosage: 2000 MG/KG, (5DAYS PER WEEK EVERY EVENING)
     Route: 058
     Dates: start: 2005, end: 2019

REACTIONS (1)
  - Cardiac failure congestive [Unknown]
